FAERS Safety Report 16467849 (Version 3)
Quarter: 2019Q4

REPORT INFORMATION
  Report Type: Spontaneous
  Country: US (occurrence: US)
  Receive Date: 20190624
  Receipt Date: 20191128
  Transmission Date: 20200122
  Serious: No
  Sender: FDA-Public Use
  Company Number: US-CELGENEUS-USA-20190607272

PATIENT
  Sex: Female

DRUGS (2)
  1. POMALYST [Suspect]
     Active Substance: POMALIDOMIDE
     Indication: PLASMA CELL MYELOMA
     Dosage: 3 MILLIGRAM
     Route: 048
     Dates: start: 201809
  2. POMALYST [Suspect]
     Active Substance: POMALIDOMIDE
     Indication: ANAEMIA
     Dosage: 2 MILLIGRAM
     Route: 048
     Dates: start: 20180719

REACTIONS (1)
  - Mouth ulceration [Not Recovered/Not Resolved]
